FAERS Safety Report 18952628 (Version 1)
Quarter: 2021Q1

REPORT INFORMATION
  Report Type: Spontaneous
  Country: FR (occurrence: FR)
  Receive Date: 20210301
  Receipt Date: 20210301
  Transmission Date: 20210420
  Serious: Yes (Other)
  Sender: FDA-Public Use
  Company Number: FR-DENTSPLY-2021SCDP000052

PATIENT
  Age: 3 Month
  Sex: Male

DRUGS (1)
  1. PRILOCAINE AND LIDOCAINE [Suspect]
     Active Substance: LIDOCAINE\PRILOCAINE
     Indication: VACCINATION SITE ANAESTHESIA
     Dosage: 1 PATCH ON EACH LEG
     Route: 003
     Dates: start: 20210208, end: 20210208

REACTIONS (2)
  - Second degree chemical burn of skin [None]
  - Skin haemorrhage [None]

NARRATIVE: CASE EVENT DATE: 20210208
